FAERS Safety Report 10882208 (Version 1)
Quarter: 2015Q1

REPORT INFORMATION
  Report Type: Spontaneous
  Country: US (occurrence: None)
  Receive Date: 20150226
  Receipt Date: 20150226
  Transmission Date: 20150721
  Serious: Yes (Hospitalization)
  Sender: FDA-Public Use
  Company Number: None

PATIENT
  Age: 1 Year
  Sex: Female
  Weight: 8.1 kg

DRUGS (3)
  1. CYTARABINE. [Suspect]
     Active Substance: CYTARABINE
     Dates: end: 20130520
  2. HYDROCORTISONE. [Suspect]
     Active Substance: HYDROCORTISONE
     Dates: end: 20130530
  3. METHOTREXATE [Suspect]
     Active Substance: METHOTREXATE
     Dates: end: 20130607

REACTIONS (14)
  - Mucosal inflammation [None]
  - Cytomegalovirus infection [None]
  - Pyrexia [None]
  - Pneumonia [None]
  - Enterovirus infection [None]
  - Urinary tract infection [None]
  - Enterovirus test positive [None]
  - Weight decreased [None]
  - Klebsiella infection [None]
  - Human rhinovirus test positive [None]
  - Stomatitis [None]
  - Drug interaction [None]
  - Alanine aminotransferase increased [None]
  - Aspartate aminotransferase increased [None]

NARRATIVE: CASE EVENT DATE: 20130609
